FAERS Safety Report 6527119-3 (Version None)
Quarter: 2010Q1

REPORT INFORMATION
  Report Type: 
  Country: None (occurrence: None)
  Receive Date: 20100105
  Receipt Date: 20091228
  Transmission Date: 20100710
  Serious: Yes (Hospitalization, Other)
  Sender: FDA-Public Use
  Company Number: TR-ELI_LILLY_AND_COMPANY-TR200912005718

PATIENT
  Age: 70 Year
  Sex: Male

DRUGS (3)
  1. HUMALOG MIX 75/25 [Suspect]
     Indication: DIABETES MELLITUS
     Dosage: UNK UNK, 2/D
     Route: 058
     Dates: start: 20070101
  2. ALDACTAZIDE [Concomitant]
     Indication: HYPERTENSION
     Dosage: UNK UNK, DAILY (1/D)
     Route: 048
  3. CORASPIN [Concomitant]
     Indication: CARDIAC DISORDER
     Dosage: UNK UNK, DAILY (1/D)
     Route: 048

REACTIONS (1)
  - FOOT AMPUTATION [None]
